FAERS Safety Report 5489348-X (Version None)
Quarter: 2008Q1

REPORT INFORMATION
  Report Type: 
  Country: None (occurrence: None)
  Receive Date: 20071016
  Receipt Date: 20071016
  Transmission Date: 20080703
  Serious: Yes (Hospitalization)
  Sender: FDA-Public Use
  Company Number: None

PATIENT
  Sex: Female
  Weight: 115.2136 kg

DRUGS (1)
  1. RECLAST [Suspect]
     Indication: OSTEOPOROSIS
     Dosage: 5MG/100ML ONCE IV INFUSION
     Route: 042
     Dates: start: 20071011

REACTIONS (4)
  - ADVERSE DRUG REACTION [None]
  - CHILLS [None]
  - PYREXIA [None]
  - SWELLING FACE [None]
